FAERS Safety Report 6193085-6 (Version None)
Quarter: 2009Q2

REPORT INFORMATION
  Report Type: 
  Country: None (occurrence: None)
  Receive Date: 20090513
  Receipt Date: 20090513
  Transmission Date: 20091009
  Serious: Yes (Other)
  Sender: FDA-Public Use
  Company Number: None

PATIENT
  Sex: Female
  Weight: 60.3284 kg

DRUGS (1)
  1. MIRENA [Suspect]
     Indication: CONTRACEPTION
     Dates: start: 20070601, end: 20090501

REACTIONS (11)
  - ALOPECIA [None]
  - AMNESIA [None]
  - DEPRESSION [None]
  - DISORIENTATION [None]
  - DIZZINESS [None]
  - GENERAL PHYSICAL HEALTH DETERIORATION [None]
  - LIBIDO DECREASED [None]
  - METRORRHAGIA [None]
  - NERVOUSNESS [None]
  - PRURITUS [None]
  - URTICARIA [None]
